FAERS Safety Report 5596832-7 (Version None)
Quarter: 2008Q1

REPORT INFORMATION
  Report Type: 
  Country: None (occurrence: None)
  Receive Date: 20080119
  Receipt Date: 20080109
  Transmission Date: 20080703
  Serious: Yes (Other)
  Sender: FDA-Public Use
  Company Number: US-PFIZER INC-2008003951

PATIENT

DRUGS (1)
  1. LIPITOR [Suspect]
     Dosage: TEXT:HALF OF A 20MG TABLET ON AND OFF

REACTIONS (1)
  - RENAL DISORDER [None]
